FAERS Safety Report 9160238 (Version 1)
Quarter: 2013Q1

REPORT INFORMATION
  Report Type: Spontaneous
  Country: US (occurrence: None)
  Receive Date: 20130220
  Receipt Date: 20130220
  Transmission Date: 20140127
  Serious: Yes (Other)
  Sender: FDA-Public Use
  Company Number: DKLU1088905

PATIENT
  Age: 24 Week
  Sex: Male
  Weight: .54 kg

DRUGS (1)
  1. INDOCIN (INDOMETHACIN FOR INJECTION) (INDOMETHACIN) [Suspect]
     Indication: PROPHYLAXIS

REACTIONS (3)
  - Acute abdomen [None]
  - Intestinal perforation [None]
  - Aortic thrombosis [None]
